FAERS Safety Report 22823990 (Version 3)
Quarter: 2024Q2

REPORT INFORMATION
  Report Type: Spontaneous
  Country: CA (occurrence: CA)
  Receive Date: 20230815
  Receipt Date: 20240529
  Transmission Date: 20240716
  Serious: Yes (Hospitalization, Other)
  Sender: FDA-Public Use
  Company Number: CA-TAKEDA-2023TUS077968

PATIENT
  Age: 85 Year
  Sex: Male

DRUGS (7)
  1. PANTOPRAZOLE [Interacting]
     Active Substance: PANTOPRAZOLE
     Dosage: 40 MG, 2X/DAY (BID)
     Route: 065
  2. CALQUENCE [Interacting]
     Active Substance: ACALABRUTINIB
     Indication: Chronic lymphocytic leukaemia
     Dosage: 100 MG, 2X/DAY (BID)
     Route: 048
     Dates: start: 20210408, end: 20230426
  3. FAM-TRASTUZUMAB DERUXTECAN-NXKI [Interacting]
     Active Substance: FAM-TRASTUZUMAB DERUXTECAN-NXKI
     Indication: Chronic lymphocytic leukaemia
     Dosage: 100 MILLIGRAM, Q12H (PHARMACEUTICAL FORM: POWDER AND SOLUTION FOR SOLUTION FOR INJECTION)
     Route: 042
     Dates: start: 20210408
  4. FAM-TRASTUZUMAB DERUXTECAN-NXKI [Interacting]
     Active Substance: FAM-TRASTUZUMAB DERUXTECAN-NXKI
     Dosage: UNK
     Route: 065
  5. FAM-TRASTUZUMAB DERUXTECAN-NXKI [Interacting]
     Active Substance: FAM-TRASTUZUMAB DERUXTECAN-NXKI
     Dosage: UNK
     Route: 065
  6. TYLENOL [Concomitant]
     Active Substance: ACETAMINOPHEN
     Dosage: UNK
  7. ASPIRIN [Concomitant]
     Active Substance: ASPIRIN
     Dosage: UNK

REACTIONS (3)
  - Drug interaction [Unknown]
  - Ulcer haemorrhage [Recovering/Resolving]
  - Gastric ulcer [Unknown]
